FAERS Safety Report 7505529-5 (Version None)
Quarter: 2011Q2

REPORT INFORMATION
  Report Type: 
  Country: None (occurrence: None)
  Receive Date: 20110526
  Receipt Date: 20110518
  Transmission Date: 20111010
  Serious: Yes (Other)
  Sender: FDA-Public Use
  Company Number: JP-ASTELLAS-2011US002315

PATIENT
  Age: 58 Year
  Sex: Male

DRUGS (6)
  1. PREDNISOLONE [Concomitant]
     Dosage: 15 MG, UID/QD
     Route: 065
     Dates: start: 20081210
  2. MEROPENEM [Concomitant]
     Indication: PRODUCT USED FOR UNKNOWN INDICATION
     Dosage: 1 G, UID/QD
     Route: 065
     Dates: start: 20081201
  3. AMBISOME [Suspect]
     Indication: FUNGAL INFECTION
     Dosage: 3 MG/KG, UID/QD
     Route: 065
     Dates: start: 20090101
  4. VANCOMYCIN [Concomitant]
     Indication: PRODUCT USED FOR UNKNOWN INDICATION
     Dosage: 1 G, UID/QD
     Route: 065
     Dates: start: 20081201
  5. ITRACONAZOLE [Concomitant]
     Indication: PRODUCT USED FOR UNKNOWN INDICATION
     Dosage: 200 MG, UID/QD
     Route: 051
  6. PREDNISOLONE [Concomitant]
     Indication: NEPHROTIC SYNDROME
     Dosage: 30 MG, UID/QD
     Route: 065
     Dates: start: 20080101, end: 20080101

REACTIONS (1)
  - PANCYTOPENIA [None]
